FAERS Safety Report 8525193 (Version 3)
Quarter: 2013Q2

REPORT INFORMATION
  Report Type: Report from Study
  Country: FR (occurrence: FR)
  Receive Date: 20120423
  Receipt Date: 20130621
  Transmission Date: 20140414
  Serious: Yes (Other)
  Sender: FDA-Public Use
  Company Number: PHHY2012FR033086

PATIENT
  Age: 80 Year
  Sex: Female
  Weight: 64.4 kg

DRUGS (4)
  1. EXELON [Suspect]
     Indication: DEMENTIA ALZHEIMER^S TYPE
     Dosage: 3 MG, UNK
     Route: 048
     Dates: start: 200905, end: 20111013
  2. MODOPAR [Concomitant]
     Indication: EXTRAPYRAMIDAL DISORDER
     Dosage: 625 MG, QD
  3. CARDENSIEL [Concomitant]
     Indication: HYPERTENSION
     Dosage: 1.25 MG, QD
  4. SULPIRIDE [Concomitant]
     Indication: DELIRIUM
     Dosage: 100 MG, QD

REACTIONS (7)
  - Neurodegenerative disorder [Recovering/Resolving]
  - Delirium [Recovering/Resolving]
  - Hallucination [Recovering/Resolving]
  - Abnormal behaviour [Recovering/Resolving]
  - Drug intolerance [Recovering/Resolving]
  - Drug ineffective [Unknown]
  - Incoherent [Recovering/Resolving]
